FAERS Safety Report 10926019 (Version 2)
Quarter: 2015Q1

REPORT INFORMATION
  Report Type: Report from Study
  Country: EG (occurrence: EG)
  Receive Date: 20150318
  Receipt Date: 20150323
  Transmission Date: 20150721
  Serious: Yes (Death, Other)
  Sender: FDA-Public Use
  Company Number: EG-SA-2015SA030906

PATIENT
  Age: 65 Year
  Sex: Female

DRUGS (3)
  1. LANTUS [Suspect]
     Active Substance: INSULIN GLARGINE
     Indication: TYPE 2 DIABETES MELLITUS
     Route: 058
     Dates: start: 20141112, end: 2015
  2. LANTUS [Suspect]
     Active Substance: INSULIN GLARGINE
     Indication: TYPE 2 DIABETES MELLITUS
     Route: 058
     Dates: start: 2015
  3. NOVOMIX [Concomitant]
     Active Substance: INSULIN ASPART

REACTIONS (5)
  - Pancreatic carcinoma metastatic [Fatal]
  - Hepatic failure [Fatal]
  - Hyperglycaemia [Unknown]
  - Metastases to liver [Fatal]
  - Generalised oedema [Fatal]

NARRATIVE: CASE EVENT DATE: 2015
